FAERS Safety Report 5250862-3 (Version None)
Quarter: 2007Q1

REPORT INFORMATION
  Report Type: 
  Country: None (occurrence: None)
  Receive Date: 20070228
  Receipt Date: 20060720
  Transmission Date: 20070707
  Serious: Yes (Other)
  Sender: FDA-Public Use
  Company Number: US-GLAXOSMITHKLINE-A0612974A

PATIENT
  Age: 48 Year
  Sex: Female

DRUGS (10)
  1. LAMICTAL [Suspect]
     Indication: DRUG USE FOR UNKNOWN INDICATION
     Dosage: 25MG PER DAY
     Route: 048
     Dates: start: 20060619, end: 20060715
  2. LOPRESSOR [Concomitant]
  3. OXYCODONE HCL [Concomitant]
  4. HYDROCODONE [Concomitant]
  5. FLEXERIL [Concomitant]
  6. GEODON [Concomitant]
  7. PROVIGIL [Concomitant]
  8. XANAX [Concomitant]
  9. ULTRAM [Concomitant]
  10. CYMBALTA [Concomitant]

REACTIONS (3)
  - BLISTER [None]
  - ERYTHEMA [None]
  - STEVENS-JOHNSON SYNDROME [None]
